FAERS Safety Report 7757403-7 (Version None)
Quarter: 2011Q3

REPORT INFORMATION
  Report Type: 
  Country: None (occurrence: None)
  Receive Date: 20110916
  Receipt Date: 20110908
  Transmission Date: 20111222
  Serious: Yes (Death, Hospitalization)
  Sender: FDA-Public Use
  Company Number: US-ACTELION-A-NJ2011-53766

PATIENT

DRUGS (2)
  1. EPOPROSTENOL SODIUM [Suspect]
     Indication: PULMONARY ARTERIAL HYPERTENSION
     Dosage: 4.7 NG/KG, PER MIN
     Route: 041
     Dates: start: 20110907, end: 20110907
  2. FLOLAN [Concomitant]
     Dosage: UNK
     Dates: end: 20110907

REACTIONS (4)
  - DEATH [None]
  - RESPIRATORY ARREST [None]
  - DYSPNOEA [None]
  - ENDOTRACHEAL INTUBATION [None]
